FAERS Safety Report 4620875-0 (Version None)
Quarter: 2005Q1

REPORT INFORMATION
  Report Type: 
  Country: None (occurrence: None)
  Receive Date: 20050325
  Receipt Date: 20050321
  Transmission Date: 20050727
  Serious: No
  Sender: FDA-Public Use
  Company Number: TAP2005Q00464

PATIENT
  Age: 69 Year
  Sex: Female

DRUGS (2)
  1. PREVACID [Suspect]
     Indication: GASTROOESOPHAGEAL REFLUX DISEASE
     Dosage: 30 MG, 1 IN 1 D, PER ORAL
     Route: 048
     Dates: start: 20041201
  2. LOTREL [Concomitant]

REACTIONS (4)
  - BURNING SENSATION [None]
  - EYE IRRITATION [None]
  - LIP DRY [None]
  - VISION BLURRED [None]
